FAERS Safety Report 7578177-9 (Version None)
Quarter: 2011Q2

REPORT INFORMATION
  Report Type: 
  Country: None (occurrence: None)
  Receive Date: 20110628
  Receipt Date: 20110623
  Transmission Date: 20111010
  Serious: Yes (Death)
  Sender: FDA-Public Use
  Company Number: A0933005A

PATIENT
  Age: 87 Year
  Sex: Female

DRUGS (4)
  1. PROMACTA [Suspect]
     Indication: PRODUCT USED FOR UNKNOWN INDICATION
     Dosage: 50MG PER DAY
     Route: 048
  2. GEMFIBROZIL [Concomitant]
  3. STARLIX [Concomitant]
  4. ACTOS [Concomitant]

REACTIONS (1)
  - DEATH [None]
